FAERS Safety Report 9921616 (Version 2)
Quarter: 2014Q1

REPORT INFORMATION
  Report Type: Spontaneous
  Country: US (occurrence: US)
  Receive Date: 20140225
  Receipt Date: 20140226
  Transmission Date: 20141002
  Serious: No
  Sender: FDA-Public Use
  Company Number: US-PFIZER INC-2014052868

PATIENT
  Sex: Female

DRUGS (5)
  1. CELEBREX [Suspect]
     Indication: SJOGREN^S SYNDROME
     Dosage: 200 MG, 1X/DAY
     Dates: start: 2013
  2. PLAQUENIL [Concomitant]
     Indication: SJOGREN^S SYNDROME
     Dosage: 200 MG, 1X/DAY
  3. SALAGEN [Concomitant]
     Indication: DRY MOUTH
     Dosage: 5 MG, 1X/DAY
  4. TYLENOL [Concomitant]
     Indication: PAIN
     Dosage: UNKNOWN DOSE AS NEEDED
  5. BENADRYL [Concomitant]
     Dosage: UNK

REACTIONS (4)
  - Drug dose omission [Unknown]
  - Erythema [Not Recovered/Not Resolved]
  - Pruritus [Not Recovered/Not Resolved]
  - Rash [Not Recovered/Not Resolved]
